FAERS Safety Report 11685452 (Version 2)
Quarter: 2018Q4

REPORT INFORMATION
  Report Type: Spontaneous
  Country: US (occurrence: US)
  Receive Date: 20151030
  Receipt Date: 20181030
  Transmission Date: 20190204
  Serious: Yes (Life-Threatening, Hospitalization)
  Sender: FDA-Public Use
  Company Number: US-ACS-000252

PATIENT
  Age: 64 Year
  Sex: Male

DRUGS (5)
  1. CEFTAZIDIME. [Suspect]
     Active Substance: CEFTAZIDIME
     Route: 041
  2. COLISTIN [Concomitant]
     Active Substance: COLISTIN
     Indication: SEPTIC SHOCK
     Route: 042
  3. CEFTAZIDIME. [Suspect]
     Active Substance: CEFTAZIDIME
     Indication: SEPTIC SHOCK
     Route: 041
  4. COLISTIN [Concomitant]
     Active Substance: COLISTIN
     Indication: INFECTION REACTIVATION
     Route: 042
  5. CEFTAZIDIME. [Suspect]
     Active Substance: CEFTAZIDIME
     Indication: INFECTION REACTIVATION
     Route: 041

REACTIONS (2)
  - Off label use [Unknown]
  - Status epilepticus [Recovered/Resolved]
